FAERS Safety Report 5409733-1 (Version None)
Quarter: 2007Q3

REPORT INFORMATION
  Report Type: 
  Country: None (occurrence: None)
  Receive Date: 20070809
  Receipt Date: 20070806
  Transmission Date: 20080115
  Serious: Yes (Life-Threatening, Hospitalization)
  Sender: FDA-Public Use
  Company Number: B0479021A

PATIENT
  Age: 58 Year
  Sex: Female
  Weight: 42 kg

DRUGS (3)
  1. ARIXTRA [Suspect]
     Indication: THROMBOSIS PROPHYLAXIS
     Dosage: 2.5MG PER DAY
     Route: 058
     Dates: start: 20070706, end: 20070710
  2. PANSPORIN [Concomitant]
     Indication: INFECTION PROPHYLAXIS
     Route: 042
     Dates: start: 20070704, end: 20070708
  3. INSULIN [Concomitant]
     Indication: DIABETES MELLITUS
     Route: 065

REACTIONS (7)
  - ANAEMIA POSTOPERATIVE [None]
  - DIABETIC NEPHROPATHY [None]
  - HAEMOGLOBIN DECREASED [None]
  - MUSCLE HAEMORRHAGE [None]
  - POST PROCEDURAL HAEMORRHAGE [None]
  - POST PROCEDURAL SWELLING [None]
  - RENAL IMPAIRMENT [None]
